FAERS Safety Report 8483474-9 (Version None)
Quarter: 2012Q3

REPORT INFORMATION
  Report Type: 
  Country: None (occurrence: None)
  Receive Date: 20120702
  Receipt Date: 20120620
  Transmission Date: 20120928
  Serious: Yes (Hospitalization, Other)
  Sender: FDA-Public Use
  Company Number: NZ-ELI_LILLY_AND_COMPANY-NZ201206006277

PATIENT
  Sex: Male

DRUGS (2)
  1. ZYPREXA RELPREVV [Suspect]
     Dosage: 300 MG, 2/M
     Dates: start: 20120501
  2. METFORMIN HCL [Concomitant]

REACTIONS (11)
  - NASOPHARYNGITIS [None]
  - APHASIA [None]
  - DELIRIUM [None]
  - RESTLESSNESS [None]
  - BLOOD PRESSURE INCREASED [None]
  - TOOTH EXTRACTION [None]
  - AGITATION [None]
  - SOMNOLENCE [None]
  - DIZZINESS [None]
  - PALLOR [None]
  - PUPILLARY REFLEX IMPAIRED [None]
